FAERS Safety Report 21639881 (Version 3)
Quarter: 2023Q1

REPORT INFORMATION
  Report Type: Report from Study
  Country: US (occurrence: US)
  Receive Date: 20221124
  Receipt Date: 20230112
  Transmission Date: 20230418
  Serious: No
  Sender: FDA-Public Use
  Company Number: US-002147023-NVSC2022US263795

PATIENT
  Age: 88 Year
  Sex: Female

DRUGS (3)
  1. ENTRESTO [Suspect]
     Active Substance: SACUBITRIL\VALSARTAN
     Indication: Cardiac failure
     Dosage: 1 DOSAGE FORM, BID
     Route: 048
  2. MELOXICAM [Suspect]
     Active Substance: MELOXICAM
     Indication: Accident at home
     Dosage: UNK
     Route: 065
  3. XANAX [Suspect]
     Active Substance: ALPRAZOLAM
     Indication: Anxiety
     Dosage: UNK
     Route: 065

REACTIONS (3)
  - Anxiety [Unknown]
  - Back pain [Unknown]
  - Memory impairment [Unknown]
